FAERS Safety Report 15125651 (Version 6)
Quarter: 2020Q1

REPORT INFORMATION
  Report Type: Report from Study
  Country: PT (occurrence: PT)
  Receive Date: 20180710
  Receipt Date: 20200224
  Transmission Date: 20200409
  Serious: Yes (Hospitalization)
  Sender: FDA-Public Use
  Company Number: PT-MYLANLABS-2018M1048951

PATIENT
  Age: 72 Year
  Sex: Male
  Weight: 81 kg

DRUGS (12)
  1. BLINDED LCZ696 [Suspect]
     Active Substance: SACUBITRIL\VALSARTAN
     Dosage: 200 MG, QD,CODE NOT BROKEN
     Route: 048
     Dates: start: 20180212
  2. VALSARTAN. [Suspect]
     Active Substance: VALSARTAN
     Indication: ACUTE MYOCARDIAL INFARCTION
     Dosage: UNK,CODE NOT BROKEN
     Route: 048
  3. VALSARTAN. [Suspect]
     Active Substance: VALSARTAN
     Dosage: 200 MG, QD,CODE NOT BROKEN
     Route: 048
     Dates: start: 20180212
  4. CLOPIDOGREL [Suspect]
     Active Substance: CLOPIDOGREL BISULFATE
     Indication: ANTIPLATELET THERAPY
     Dosage: UNK
     Route: 065
  5. BLINDED RAMIPRIL [Suspect]
     Active Substance: RAMIPRIL
     Dosage: 100 MG, QD,CODE NOT BROKEN
     Route: 048
     Dates: start: 20180206
  6. BLINDED LCZ696 [Suspect]
     Active Substance: SACUBITRIL\VALSARTAN
     Dosage: 100 MG, QD,CODE NOT BROKEN
     Route: 048
     Dates: start: 20180206
  7. CLOPIDOGREL [Suspect]
     Active Substance: CLOPIDOGREL BISULFATE
     Dosage: 400 MG, TOTAL, 400 MG ONCE/SINGLE
     Route: 048
     Dates: start: 20180306, end: 20180306
  8. CLOPIDOGREL [Suspect]
     Active Substance: CLOPIDOGREL BISULFATE
     Dosage: 75 MG, TOTAL, ONCE/SINGLE
     Route: 048
     Dates: start: 20180307, end: 20180316
  9. BLINDED LCZ696 [Suspect]
     Active Substance: SACUBITRIL\VALSARTAN
     Indication: ACUTE MYOCARDIAL INFARCTION
     Dosage: UNK,CODE NOT BROKEN
     Route: 048
  10. VALSARTAN. [Suspect]
     Active Substance: VALSARTAN
     Dosage: 100 MG, QD
     Route: 048
     Dates: start: 20180206
  11. BLINDED RAMIPRIL [Suspect]
     Active Substance: RAMIPRIL
     Indication: ACUTE MYOCARDIAL INFARCTION
     Dosage: CODE NOT BROKEN
     Route: 048
  12. BLINDED RAMIPRIL [Suspect]
     Active Substance: RAMIPRIL
     Dosage: 200 MG, QD,CODE NOT BROKEN
     Route: 048
     Dates: start: 20180212

REACTIONS (1)
  - Cardiac failure [Recovered/Resolved]

NARRATIVE: CASE EVENT DATE: 20180313
